FAERS Safety Report 10929639 (Version 4)
Quarter: 2016Q3

REPORT INFORMATION
  Report Type: Spontaneous
  Country: US (occurrence: US)
  Receive Date: 20150319
  Receipt Date: 20160919
  Transmission Date: 20161109
  Serious: Yes (Hospitalization, Disabling, Other)
  Sender: FDA-Public Use
  Company Number: US-009507513-1503USA008962

PATIENT
  Sex: Female
  Weight: 80.73 kg

DRUGS (2)
  1. ALENDRONATE SODIUM. [Suspect]
     Active Substance: ALENDRONATE SODIUM
     Indication: OSTEOPENIA
     Dosage: 70 MG, QW
     Route: 048
     Dates: start: 200804, end: 200805
  2. FOSAMAX [Suspect]
     Active Substance: ALENDRONATE SODIUM
     Indication: OSTEOPENIA
     Dosage: 70 MG, QW
     Route: 048
     Dates: start: 1997, end: 201103

REACTIONS (24)
  - Hypoaesthesia [Not Recovered/Not Resolved]
  - Gastrooesophageal reflux disease [Unknown]
  - Anxiety [Recovered/Resolved]
  - Foot fracture [Unknown]
  - Arthralgia [Not Recovered/Not Resolved]
  - Pain in extremity [Unknown]
  - Osteoarthritis [Unknown]
  - Fracture nonunion [Recovering/Resolving]
  - Femur fracture [Unknown]
  - Femur fracture [Unknown]
  - Haemorrhagic anaemia [Unknown]
  - Glaucoma [Unknown]
  - Back pain [Unknown]
  - Depression [Recovered/Resolved]
  - Hyperkalaemia [Unknown]
  - Diverticulum intestinal [Unknown]
  - Fracture nonunion [Not Recovered/Not Resolved]
  - Nausea [Unknown]
  - Low turnover osteopathy [Not Recovered/Not Resolved]
  - Device breakage [Unknown]
  - Hysterectomy [Unknown]
  - Intervertebral disc degeneration [Unknown]
  - Pancreatic carcinoma [Unknown]
  - Osteoporosis [Not Recovered/Not Resolved]

NARRATIVE: CASE EVENT DATE: 2000
